FAERS Safety Report 8647909 (Version 2)
Quarter: 2014Q1

REPORT INFORMATION
  Report Type: Spontaneous
  Country: US (occurrence: None)
  Receive Date: 20120323
  Receipt Date: 20130305
  Transmission Date: 20141002
  Serious: Yes (Other)
  Sender: FDA-Public Use
  Company Number: 163-21880-11110915

PATIENT
  Age: 61 Year
  Sex: Male

DRUGS (1)
  1. REVLIMID [Suspect]
     Indication: MYELODYSPLASTIC SYNDROME
     Dosage: DDAILY X 21 DAYS ON, 7 DAYS OFF
     Route: 048
     Dates: start: 20111025

REACTIONS (4)
  - Angioedema [None]
  - Swelling face [None]
  - Fatigue [None]
  - Asthenia [None]
